FAERS Safety Report 4378468-9 (Version None)
Quarter: 2004Q2

REPORT INFORMATION
  Report Type: 
  Country: None (occurrence: None)
  Receive Date: 20040609
  Receipt Date: 20040526
  Transmission Date: 20050107
  Serious: Yes (Other)
  Sender: FDA-Public Use
  Company Number: S04-USA-02951-01

PATIENT
  Age: 56 Year
  Sex: Male
  Weight: 104.3273 kg

DRUGS (14)
  1. NAMENDA [Suspect]
     Indication: MEMORY IMPAIRMENT
     Dosage: 5 MG BID PO
     Route: 048
     Dates: end: 20040419
  2. NAMENDA [Suspect]
     Indication: MEMORY IMPAIRMENT
     Dosage: 5 MG QD PO
     Route: 048
     Dates: start: 20040324
  3. EFFEXOR [Concomitant]
  4. VITAMIN E [Concomitant]
  5. TOPAMAX [Concomitant]
  6. FOLIC ACID [Concomitant]
  7. VIOXX [Concomitant]
  8. DETROL LA [Concomitant]
  9. LIPITOR [Concomitant]
  10. ARICEPT [Concomitant]
  11. MIRAPEX [Concomitant]
  12. AMBIEN [Concomitant]
  13. GLUCOSAMINE [Concomitant]
  14. DARVOCET-N 100 [Concomitant]

REACTIONS (5)
  - ABNORMAL BEHAVIOUR [None]
  - AGGRESSION [None]
  - CONDITION AGGRAVATED [None]
  - HOMICIDAL IDEATION [None]
  - MEMORY IMPAIRMENT [None]
